FAERS Safety Report 10251124 (Version 1)
Quarter: 2014Q2

REPORT INFORMATION
  Report Type: Spontaneous
  Country: US (occurrence: US)
  Receive Date: 20140620
  Receipt Date: 20140620
  Transmission Date: 20141212
  Serious: Yes (Hospitalization)
  Sender: FDA-Public Use
  Company Number: US-B.I. PHARMACEUTICALS,INC./RIDGEFIELD-2014-BI-27610BP

PATIENT
  Age: 65 Year
  Sex: Female

DRUGS (14)
  1. SPIRIVA [Suspect]
     Indication: CHRONIC OBSTRUCTIVE PULMONARY DISEASE
     Dosage: 18 MCG
     Route: 055
     Dates: start: 2012
  2. LISINOPRIL [Concomitant]
     Indication: HYPERTENSION
     Route: 048
     Dates: start: 2009
  3. SYMBICORT [Concomitant]
     Indication: CHRONIC OBSTRUCTIVE PULMONARY DISEASE
     Route: 055
     Dates: start: 2013
  4. ALBUTEROL [Concomitant]
     Indication: CHRONIC OBSTRUCTIVE PULMONARY DISEASE
     Route: 055
     Dates: start: 2013
  5. METOPROLOL [Concomitant]
     Indication: CARDIAC DISORDER
     Route: 048
     Dates: start: 2009
  6. LASIX [Concomitant]
     Indication: FLUID RETENTION
     Route: 048
     Dates: start: 2013
  7. GABAPENTIN [Concomitant]
     Indication: PAIN IN EXTREMITY
     Route: 048
     Dates: start: 2014
  8. PAROXETINE [Concomitant]
     Indication: DEPRESSION
     Route: 048
  9. BUPROPION [Concomitant]
     Indication: ANXIETY
     Route: 048
     Dates: start: 2004
  10. ASPIRIN [Concomitant]
     Dosage: 81 MG
     Route: 048
     Dates: start: 2009
  11. MIRAPEX [Concomitant]
     Indication: PARKINSON^S DISEASE
     Route: 048
     Dates: start: 2013
  12. OMEPRAZOLE [Concomitant]
     Indication: ABDOMINAL DISCOMFORT
     Route: 048
     Dates: start: 2012
  13. VITAMIN D [Concomitant]
     Route: 048
  14. ATORVASTATIN [Concomitant]
     Indication: BLOOD CHOLESTEROL INCREASED
     Route: 048
     Dates: start: 2009

REACTIONS (2)
  - Chronic obstructive pulmonary disease [Recovered/Resolved]
  - Wheezing [Recovered/Resolved]
